FAERS Safety Report 6759398-1 (Version None)
Quarter: 2010Q2

REPORT INFORMATION
  Report Type: 
  Country: None (occurrence: None)
  Receive Date: 20100603
  Receipt Date: 20100520
  Transmission Date: 20101027
  Serious: Yes (Hospitalization)
  Sender: FDA-Public Use
  Company Number: JPI-P-010751

PATIENT
  Age: 59 Year
  Sex: Female
  Weight: 140 kg

DRUGS (3)
  1. XYREM [Suspect]
     Indication: SLEEP DISORDER
     Dosage: 4.5GM (2.5GM, 2 IN 1 D), ORAL
     Route: 048
     Dates: start: 20090317
  2. XYREM [Suspect]
     Indication: SLEEP DISORDER
     Dosage: 4.5GM (2.5GM, 2 IN 1 D), ORAL
     Route: 048
     Dates: start: 20100409
  3. UNSPECIFIED PSYCHIATRIC MEDICATION [Concomitant]

REACTIONS (5)
  - BIPOLAR DISORDER [None]
  - HYPERPHAGIA [None]
  - INFLUENZA [None]
  - REFUSAL OF TREATMENT BY PATIENT [None]
  - SEASONAL ALLERGY [None]
